FAERS Safety Report 19430459 (Version 1)
Quarter: 2021Q2

REPORT INFORMATION
  Report Type: Spontaneous
  Country: US (occurrence: US)
  Receive Date: 20210618
  Receipt Date: 20210618
  Transmission Date: 20210717
  Serious: No
  Sender: FDA-Public Use
  Company Number: US-ROCHE-2733714

PATIENT
  Sex: Female

DRUGS (2)
  1. ACTEMRA [Suspect]
     Active Substance: TOCILIZUMAB
  2. ACTEMRA [Suspect]
     Active Substance: TOCILIZUMAB
     Indication: RHEUMATOID ARTHRITIS
     Dosage: 162MG/0.9ML, EVERY OTHER WEEK
     Route: 058
     Dates: start: 20200922

REACTIONS (3)
  - Injection site erythema [Unknown]
  - Injection site swelling [Recovering/Resolving]
  - Musculoskeletal stiffness [Recovering/Resolving]
